FAERS Safety Report 8771559 (Version 1)
Quarter: 2012Q4

REPORT INFORMATION
  Report Type: 
  Country: US (occurrence: US)
  Receive Date: 20120906
  Receipt Date: 20120906
  Transmission Date: 20130627
  Serious: Yes (Other)
  Sender: FDA-Public Use
  Company Number: US-BAYER-2012-091121

PATIENT
  Age: 20 Year
  Sex: Female
  Weight: 65.76 kg

DRUGS (8)
  1. YAZ [Suspect]
  2. GIANVI [Suspect]
  3. BEYAZ [Suspect]
  4. LEVOTHYROXINE [Concomitant]
     Dosage: 75 mg, daily
  5. MAXALT [Concomitant]
     Dosage: 10 mg, PRN
     Route: 060
  6. MAXALT [Concomitant]
     Dosage: 5 mg, daily
  7. TRIPTAN [Concomitant]
     Dosage: UNK
  8. INDERAL LA [Concomitant]
     Indication: MIGRAINE
     Dosage: 81 mg, daily

REACTIONS (1)
  - Cerebral venous thrombosis [None]
